FAERS Safety Report 15104162 (Version 1)
Quarter: 2018Q3

REPORT INFORMATION
  Report Type: Report from Study
  Country: IT (occurrence: IT)
  Receive Date: 20180703
  Receipt Date: 20180703
  Transmission Date: 20181010
  Serious: Yes (Other)
  Sender: FDA-Public Use
  Company Number: IT-EISAI MEDICAL RESEARCH-EC-2018-037398

PATIENT
  Sex: Male

DRUGS (1)
  1. FYCOMPA [Suspect]
     Active Substance: PERAMPANEL
     Indication: PRODUCT USED FOR UNKNOWN INDICATION
     Dosage: UNKNOWN
     Route: 048
     Dates: end: 201804

REACTIONS (8)
  - Aggression [Recovered/Resolved]
  - Delusion [Recovered/Resolved]
  - Insomnia [Recovered/Resolved]
  - Psychotic disorder [Recovered/Resolved]
  - Irritability [Not Recovered/Not Resolved]
  - Paranoia [Recovered/Resolved]
  - Restlessness [Recovered/Resolved]
  - Vertigo [Not Recovered/Not Resolved]

NARRATIVE: CASE EVENT DATE: 20170118
